FAERS Safety Report 5955063-9 (Version None)
Quarter: 2008Q4

REPORT INFORMATION
  Report Type: 
  Country: None (occurrence: None)
  Receive Date: 20081117
  Receipt Date: 20081107
  Transmission Date: 20090506
  Serious: Yes (Hospitalization)
  Sender: FDA-Public Use
  Company Number: B0545361A

PATIENT
  Age: 81 Year
  Sex: Male

DRUGS (4)
  1. REQUIP [Suspect]
     Dosage: 8MG PER DAY
     Route: 048
  2. MODOPAR [Concomitant]
     Dosage: 750MG PER DAY
     Route: 048
  3. GUTRON [Concomitant]
     Dosage: 6UNIT PER DAY
     Route: 048
  4. MOTILIUM [Concomitant]
     Dosage: 3UNIT PER DAY
     Route: 048

REACTIONS (6)
  - FALL [None]
  - HALLUCINATION [None]
  - HYPOTENSION [None]
  - INFLAMMATION [None]
  - RHABDOMYOLYSIS [None]
  - URINARY INCONTINENCE [None]
